FAERS Safety Report 21630842 (Version 1)
Quarter: 2022Q4

REPORT INFORMATION
  Report Type: Spontaneous
  Country: CN (occurrence: None)
  Receive Date: 20221123
  Receipt Date: 20221123
  Transmission Date: 20230113
  Serious: Yes (Other)
  Sender: FDA-Public Use
  Company Number: CN-ROCHE-3222495

PATIENT
  Age: 37 Year
  Sex: Male
  Weight: 56 kg

DRUGS (1)
  1. MABTHERA [Suspect]
     Active Substance: RITUXIMAB
     Indication: Lymphoma
     Route: 041
     Dates: start: 20221031, end: 20221031

REACTIONS (1)
  - Temperature intolerance [Recovering/Resolving]

NARRATIVE: CASE EVENT DATE: 20221031
